FAERS Safety Report 5920331-3 (Version None)
Quarter: 2008Q4

REPORT INFORMATION
  Report Type: 
  Country: None (occurrence: None)
  Receive Date: 20081016
  Receipt Date: 20081007
  Transmission Date: 20090506
  Serious: Yes (Hospitalization, Other)
  Sender: FDA-Public Use
  Company Number: PHHY2008JP19054

PATIENT
  Sex: Female

DRUGS (3)
  1. DIOVAN [Suspect]
     Indication: HYPERTENSION
     Dosage: 80 MG, QD
     Route: 048
  2. AMLODIN [Concomitant]
     Indication: HYPERTENSION
     Dosage: 5 MG
     Route: 048
  3. TAKEPRON [Concomitant]
     Indication: REFLUX OESOPHAGITIS
     Dosage: 15 MG
     Route: 048

REACTIONS (10)
  - AMMONIA INCREASED [None]
  - BLOOD CALCIUM DECREASED [None]
  - BLOOD UREA INCREASED [None]
  - HAEMATOCRIT DECREASED [None]
  - HAEMOGLOBIN DECREASED [None]
  - HYPOGLYCAEMIA [None]
  - JAPAN COMA SCALE ABNORMAL [None]
  - LOSS OF CONSCIOUSNESS [None]
  - PROTHROMBIN TIME ABNORMAL [None]
  - WHITE BLOOD CELL COUNT INCREASED [None]
